FAERS Safety Report 16881052 (Version 1)
Quarter: 2019Q4

REPORT INFORMATION
  Report Type: Spontaneous
  Country: US (occurrence: US)
  Receive Date: 20190807
  Receipt Date: 20190807
  Transmission Date: 20200122
  Serious: Yes (Hospitalization)
  Sender: FDA-Public Use
  Company Number: None

PATIENT
  Age: 64 Year
  Sex: Female
  Weight: 53 kg

DRUGS (2)
  1. 5-FLUOROURACIL (5-FU) [Suspect]
     Active Substance: FLUOROURACIL
  2. CISPLATIN. [Suspect]
     Active Substance: CISPLATIN

REACTIONS (3)
  - Haemostasis [None]
  - Epistaxis [None]
  - Pyrexia [None]

NARRATIVE: CASE EVENT DATE: 20190715
